FAERS Safety Report 14710224 (Version 1)
Quarter: 2018Q2

REPORT INFORMATION
  Report Type: Spontaneous
  Country: US (occurrence: US)
  Receive Date: 20180403
  Receipt Date: 20180403
  Transmission Date: 20180711
  Serious: No
  Sender: FDA-Public Use
  Company Number: US-EMD SERONO-236211K04USA

PATIENT
  Age: 44 Year
  Sex: Female
  Weight: 57 kg

DRUGS (3)
  1. REBIF [Suspect]
     Active Substance: INTERFERON BETA-1A
     Route: 058
     Dates: start: 20130320
  2. REBIF [Suspect]
     Active Substance: INTERFERON BETA-1A
     Indication: MULTIPLE SCLEROSIS
     Route: 058
     Dates: start: 20031222
  3. NAPROXEN. [Concomitant]
     Active Substance: NAPROXEN
     Indication: ABDOMINAL PAIN UPPER
     Dosage: AS REQUIRED
     Dates: start: 1995

REACTIONS (12)
  - Injection site bruising [Not Recovered/Not Resolved]
  - Multiple sclerosis [Not Recovered/Not Resolved]
  - Abdominal distension [Recovering/Resolving]
  - Injection site mass [Not Recovered/Not Resolved]
  - Incorrect route of drug administration [Unknown]
  - Haemangioma of liver [Not Recovered/Not Resolved]
  - Injection site reaction [Unknown]
  - Skin exfoliation [Unknown]
  - Abdominal pain lower [Recovering/Resolving]
  - Injection site cellulitis [Recovering/Resolving]
  - Injection site pain [Recovering/Resolving]
  - Musculoskeletal disorder [Not Recovered/Not Resolved]

NARRATIVE: CASE EVENT DATE: 200411
